FAERS Safety Report 7440586-6 (Version None)
Quarter: 2011Q2

REPORT INFORMATION
  Report Type: 
  Country: None (occurrence: None)
  Receive Date: 20110427
  Receipt Date: 20110419
  Transmission Date: 20111010
  Serious: Yes (Other)
  Sender: FDA-Public Use
  Company Number: B0704193A

PATIENT
  Sex: Female

DRUGS (2)
  1. YASMIN [Concomitant]
     Route: 048
  2. LAMICTAL [Suspect]
     Indication: EPILEPSY
     Dosage: 100MG PER DAY
     Route: 048
     Dates: start: 20101201

REACTIONS (3)
  - DRUG EXPOSURE DURING PREGNANCY [None]
  - PREGNANCY ON ORAL CONTRACEPTIVE [None]
  - DRUG INTERACTION [None]
